FAERS Safety Report 19956742 (Version 1)
Quarter: 2021Q4

REPORT INFORMATION
  Report Type: Spontaneous
  Country: US (occurrence: US)
  Receive Date: 20211014
  Receipt Date: 20211014
  Transmission Date: 20220303
  Serious: No
  Sender: FDA-Public Use
  Company Number: US-MYLANLABS-2021M1054521

PATIENT
  Sex: Female

DRUGS (1)
  1. ESTRADIOL [Suspect]
     Active Substance: ESTRADIOL
     Indication: Menopause
     Dosage: 0.01 PERCENT
     Route: 067

REACTIONS (3)
  - Device breakage [Not Recovered/Not Resolved]
  - Product label confusion [Not Recovered/Not Resolved]
  - Product quality issue [Not Recovered/Not Resolved]
